FAERS Safety Report 7089948-X (Version None)
Quarter: 2010Q4

REPORT INFORMATION
  Report Type: 
  Country: None (occurrence: None)
  Receive Date: 20101108
  Receipt Date: 20101027
  Transmission Date: 20110411
  Serious: Yes (Other)
  Sender: FDA-Public Use
  Company Number: DE-AMGEN-DEUSP2010001724

PATIENT

DRUGS (4)
  1. NPLATE [Suspect]
     Dosage: UNK
     Dates: start: 20090401
  2. CORTISONE [Concomitant]
  3. CYCLOPHOSPHAMIDE [Concomitant]
  4. PREDNISOLON                        /00016202/ [Concomitant]

REACTIONS (1)
  - PLATELET COUNT DECREASED [None]
